FAERS Safety Report 6271061-2 (Version None)
Quarter: 2009Q3

REPORT INFORMATION
  Report Type: 
  Country: None (occurrence: None)
  Receive Date: 20090716
  Receipt Date: 20090707
  Transmission Date: 20100115
  Serious: Yes (Death, Hospitalization)
  Sender: FDA-Public Use
  Company Number: US-BAXTER-2009BH009773

PATIENT
  Age: 45 Year
  Sex: Female

DRUGS (2)
  1. DIANEAL [Suspect]
     Indication: PERITONEAL DIALYSIS
     Route: 033
     Dates: start: 20010416, end: 20090601
  2. EXTRANEAL [Suspect]
     Indication: PERITONEAL DIALYSIS
     Route: 033
     Dates: end: 20090601

REACTIONS (4)
  - CORONARY ARTERY DISEASE [None]
  - DYSPNOEA [None]
  - FLUID OVERLOAD [None]
  - MYOCARDIAL INFARCTION [None]
